FAERS Safety Report 22199108 (Version 2)
Quarter: 2023Q2

REPORT INFORMATION
  Report Type: Spontaneous
  Country: US (occurrence: US)
  Receive Date: 20230411
  Receipt Date: 20230607
  Transmission Date: 20230721
  Serious: No
  Sender: FDA-Public Use
  Company Number: US-BRISTOL-MYERS SQUIBB COMPANY-2023-048781

PATIENT
  Age: 70 Year
  Sex: Female
  Weight: 66.68 kg

DRUGS (1)
  1. REVLIMID [Suspect]
     Active Substance: LENALIDOMIDE
     Indication: Monoclonal gammopathy
     Dosage: FREQ : MEANT TO BE TAKING THEM 21 DAYS ON, 7 DAYS OFF.
     Route: 048

REACTIONS (3)
  - Incorrect product administration duration [Unknown]
  - Off label use [Unknown]
  - Illness [Unknown]

NARRATIVE: CASE EVENT DATE: 20230101
